FAERS Safety Report 15147243 (Version 2)
Quarter: 2018Q3

REPORT INFORMATION
  Report Type: Spontaneous
  Country: DE (occurrence: DE)
  Receive Date: 20180716
  Receipt Date: 20180920
  Transmission Date: 20181010
  Serious: Yes (Hospitalization)
  Sender: FDA-Public Use
  Company Number: DE-TEVA-2018-DE-925848

PATIENT
  Age: 52 Year
  Sex: Female

DRUGS (8)
  1. QUILONUM RETARD [Suspect]
     Active Substance: LITHIUM CARBONATE
     Dosage: TAGESDOSIS 675 MG?30.03.20818 ? B.A.W.
     Route: 048
     Dates: start: 20180330
  2. RAMIPRIL. [Suspect]
     Active Substance: RAMIPRIL
     Dosage: FOR WEEKS?TERMS RANGING
     Route: 048
  3. QUILONUM RETARD [Suspect]
     Active Substance: LITHIUM CARBONATE
     Dosage: FOR WEEKS?24.03.2018
     Route: 048
     Dates: end: 20180324
  4. EUTHYROX [Concomitant]
     Active Substance: LEVOTHYROXINE SODIUM
     Dosage: FOR WEEKS?TERMS RANGING
     Route: 048
  5. FLUPENTIXOL [Concomitant]
     Active Substance: FLUPENTIXOL
     Dosage: FOR WEEKS?TERMS RANGING
     Route: 048
  6. AKINETON [Concomitant]
     Active Substance: BIPERIDEN HYDROCHLORIDE
     Dosage: FOR WEEKS?TERMS RANGING
     Route: 048
  7. QUILONUM RETARD [Suspect]
     Active Substance: LITHIUM CARBONATE
     Dosage: TAGESDOSIS 450MG
     Route: 048
     Dates: start: 20180329
  8. MIRTAZAPIN [Concomitant]
     Active Substance: MIRTAZAPINE
     Dosage: FOR WEEKS?TERMS RANGING
     Route: 048

REACTIONS (5)
  - Tremor [Recovered/Resolved]
  - Sleep disorder [Recovered/Resolved]
  - Toxicity to various agents [Recovered/Resolved]
  - Restlessness [Recovered/Resolved]
  - Hyperhidrosis [Recovered/Resolved]

NARRATIVE: CASE EVENT DATE: 20180322
